FAERS Safety Report 8898460 (Version 1)
Quarter: 2012Q4

REPORT INFORMATION
  Report Type: 
  Country: US (occurrence: US)
  Receive Date: 20121108
  Receipt Date: 20121108
  Transmission Date: 20130627
  Serious: No
  Sender: FDA-Public Use
  Company Number: US-AMGEN-USASP2012023833

PATIENT
  Age: 37 Year
  Sex: Female

DRUGS (1)
  1. ENBREL [Suspect]
     Indication: RHEUMATOID ARTHRITIS
     Dosage: UNK
     Dates: start: 20120119

REACTIONS (5)
  - Weight increased [Not Recovered/Not Resolved]
  - Surgery [Recovered/Resolved]
  - Postoperative wound infection [Recovered/Resolved]
  - Staphylococcal infection [Recovered/Resolved]
  - Pneumonia [Recovered/Resolved]
